FAERS Safety Report 24595594 (Version 1)
Quarter: 2024Q4

REPORT INFORMATION
  Report Type: Spontaneous
  Country: CA (occurrence: CA)
  Receive Date: 20241109
  Receipt Date: 20241109
  Transmission Date: 20250115
  Serious: Yes (Other)
  Sender: ROCHE
  Company Number: CA-ROCHE-10000127298

PATIENT
  Sex: Female
  Weight: 97.9 kg

DRUGS (6)
  1. OCREVUS [Suspect]
     Active Substance: OCRELIZUMAB
     Indication: Multiple sclerosis
     Route: 065
  2. PREGABALIN [Concomitant]
     Active Substance: PREGABALIN
  3. EFFEXOR [Concomitant]
     Active Substance: VENLAFAXINE HYDROCHLORIDE
  4. LAMOTRIGINE [Concomitant]
     Active Substance: LAMOTRIGINE
  5. PERINDOPRIL [Concomitant]
     Active Substance: PERINDOPRIL
  6. TRAZODONE [Concomitant]
     Active Substance: TRAZODONE HYDROCHLORIDE

REACTIONS (5)
  - Head injury [Unknown]
  - Memory impairment [Unknown]
  - Headache [Unknown]
  - Depression [Unknown]
  - Suicidal ideation [Unknown]
